FAERS Safety Report 6884640-6 (Version None)
Quarter: 2010Q3

REPORT INFORMATION
  Report Type: 
  Country: None (occurrence: None)
  Receive Date: 20100727
  Receipt Date: 20100716
  Transmission Date: 20110219
  Serious: Yes (Other)
  Sender: FDA-Public Use
  Company Number: DSA_43034_2010

PATIENT
  Sex: Female

DRUGS (43)
  1. XENAZINE [Suspect]
     Indication: TARDIVE DYSKINESIA
     Dosage: (12.5 MG QD ORAL), (12.5 MG BID ORAL), (12.5 MG TID ORAL), (25 MG TID ORAL)
     Route: 048
     Dates: start: 20100401, end: 20100401
  2. XENAZINE [Suspect]
     Indication: TARDIVE DYSKINESIA
     Dosage: (12.5 MG QD ORAL), (12.5 MG BID ORAL), (12.5 MG TID ORAL), (25 MG TID ORAL)
     Route: 048
     Dates: start: 20100401, end: 20100429
  3. XENAZINE [Suspect]
     Indication: TARDIVE DYSKINESIA
     Dosage: (12.5 MG QD ORAL), (12.5 MG BID ORAL), (12.5 MG TID ORAL), (25 MG TID ORAL)
     Route: 048
     Dates: start: 20100430, end: 20100502
  4. XENAZINE [Suspect]
     Indication: TARDIVE DYSKINESIA
     Dosage: (12.5 MG QD ORAL), (12.5 MG BID ORAL), (12.5 MG TID ORAL), (25 MG TID ORAL)
     Route: 048
     Dates: start: 20100403
  5. XENAZINE [Suspect]
     Indication: TARDIVE DYSKINESIA
     Dosage: (12.5 MG QD ORAL), (12.5 MG BID ORAL), (12.5 MG TID ORAL), (25 MG TID ORAL)
     Route: 048
     Dates: start: 20100503
  6. ALLEGRA-D 12 HOUR [Concomitant]
  7. AMBIEN [Concomitant]
  8. LUNESTA [Concomitant]
  9. CARAFATE [Concomitant]
  10. ANTIVERT /00072802/ [Concomitant]
  11. COREG [Concomitant]
  12. CRESTOR [Concomitant]
  13. KLONOPIN [Concomitant]
  14. CYMBALTA [Concomitant]
  15. CLONIDINE [Concomitant]
  16. BENTYL [Concomitant]
  17. FIORICET [Concomitant]
  18. IRON [Concomitant]
  19. IMITREX /01044801/ [Concomitant]
  20. LEVOTHYROXINE [Concomitant]
  21. NEXIUM [Concomitant]
  22. LOMOTIL [Concomitant]
  23. PEPCID [Concomitant]
  24. MULTI-VITAMINS [Concomitant]
  25. SKELAXIN [Concomitant]
  26. TRICOR [Concomitant]
  27. VITAMIN D [Concomitant]
  28. ZOLOFT [Concomitant]
  29. STARLIX [Concomitant]
  30. VALIUM [Concomitant]
  31. BENADRYL [Concomitant]
  32. SUDAFED /00076302/ [Concomitant]
  33. ALKA SELTZER PLUS COLD [Concomitant]
  34. DEMEROL [Concomitant]
  35. TREXIMET [Concomitant]
  36. EVOXAC [Concomitant]
  37. PEPTO-BISMOL [Concomitant]
  38. TESSALON [Concomitant]
  39. SIMETHICONE [Concomitant]
  40. MIRAPEX [Concomitant]
  41. ASPIRIN [Concomitant]
  42. B-COMPLEX /01523901/ [Concomitant]
  43. ACIDOPHILUS [Concomitant]

REACTIONS (16)
  - AGITATION [None]
  - ANGER [None]
  - BEREAVEMENT [None]
  - CONDITION AGGRAVATED [None]
  - CRYING [None]
  - DEPRESSION [None]
  - DYSPNOEA [None]
  - EYE DISCHARGE [None]
  - FATIGUE [None]
  - FEELING ABNORMAL [None]
  - FEELING HOT [None]
  - INSOMNIA [None]
  - MIGRAINE [None]
  - MOOD SWINGS [None]
  - NAUSEA [None]
  - SUICIDAL IDEATION [None]
